FAERS Safety Report 6860111-8 (Version None)
Quarter: 2010Q3

REPORT INFORMATION
  Report Type: 
  Country: None (occurrence: None)
  Receive Date: 20100720
  Receipt Date: 20100715
  Transmission Date: 20110219
  Serious: Yes (Hospitalization)
  Sender: FDA-Public Use
  Company Number: CA-PFIZER INC-2010089036

PATIENT
  Age: 43 Year
  Sex: Female

DRUGS (3)
  1. ADRIAMYCIN PFS [Suspect]
     Indication: BREAST CANCER
     Dosage: 100 MG, EVERY TWO WEEKS
     Dates: start: 20100407
  2. CYCLOPHOSPHAMIDE [Suspect]
     Indication: BREAST CANCER
     Dosage: 1002 MG, EVERY TWO WEEKS
     Route: 042
     Dates: start: 20100407
  3. TRIPTORELIN [Suspect]
     Indication: BREAST CANCER
     Dosage: 3.75 MG, UNK
     Dates: start: 20100407

REACTIONS (1)
  - PNEUMONIA [None]
